FAERS Safety Report 10566515 (Version 1)
Quarter: 2014Q4

REPORT INFORMATION
  Report Type: Spontaneous
  Country: IN (occurrence: IN)
  Receive Date: 20141105
  Receipt Date: 20141105
  Transmission Date: 20150529
  Serious: Yes (Death, Hospitalization)
  Sender: FDA-Public Use
  Company Number: IN-PFIZER INC-2014305867

PATIENT
  Age: 66 Year
  Sex: Male

DRUGS (1)
  1. SUTENT [Suspect]
     Active Substance: SUNITINIB MALATE
     Indication: METASTATIC RENAL CELL CARCINOMA
     Dosage: 50 MG, 1X/DAY
     Route: 048
     Dates: start: 20140901

REACTIONS (5)
  - Carbon dioxide increased [Fatal]
  - Loss of consciousness [Fatal]
  - Blood sodium decreased [Fatal]
  - Hypotension [Fatal]
  - Blood potassium decreased [Fatal]

NARRATIVE: CASE EVENT DATE: 20140916
